FAERS Safety Report 6829564-5 (Version None)
Quarter: 2010Q3

REPORT INFORMATION
  Report Type: 
  Country: None (occurrence: None)
  Receive Date: 20100709
  Receipt Date: 20070403
  Transmission Date: 20110219
  Serious: No
  Sender: FDA-Public Use
  Company Number: US-PFIZER INC-2007008844

PATIENT
  Age: 74 Year
  Sex: Female

DRUGS (2)
  1. VARENICLINE [Suspect]
     Indication: SMOKING CESSATION THERAPY
     Dates: start: 20061201
  2. NOVOCAIN [Suspect]
     Indication: TOOTH REPAIR
     Dates: start: 20070115, end: 20070115

REACTIONS (2)
  - DENTAL CARIES [None]
  - PROCEDURAL PAIN [None]
